FAERS Safety Report 9210898 (Version 3)
Quarter: 2014Q2

REPORT INFORMATION
  Report Type: Spontaneous
  Country: US (occurrence: US)
  Receive Date: 20130404
  Receipt Date: 20140418
  Transmission Date: 20141212
  Serious: No
  Sender: FDA-Public Use
  Company Number: US-ASTRAZENECA-2012SE71772

PATIENT
  Age: 48 Year
  Sex: Male
  Weight: 95.3 kg

DRUGS (3)
  1. NEXIUM [Suspect]
     Indication: GASTROOESOPHAGEAL REFLUX DISEASE
     Route: 048
     Dates: start: 2009
  2. NEXIUM [Suspect]
     Indication: DYSPEPSIA
     Route: 048
     Dates: start: 2009
  3. NEXIUM [Suspect]
     Indication: BARRETT^S OESOPHAGUS
     Route: 048
     Dates: start: 2009

REACTIONS (8)
  - Pain [Unknown]
  - Dyspepsia [Unknown]
  - Adverse event [Unknown]
  - Back disorder [Unknown]
  - Gastric disorder [Unknown]
  - Therapeutic response changed [Unknown]
  - Intentional product misuse [Unknown]
  - Drug dose omission [Not Recovered/Not Resolved]
